FAERS Safety Report 9982423 (Version 1)
Quarter: 2014Q1

REPORT INFORMATION
  Report Type: Spontaneous
  Country: US (occurrence: US)
  Receive Date: 20140307
  Receipt Date: 20140307
  Transmission Date: 20141002
  Serious: No
  Sender: FDA-Public Use
  Company Number: US-ABBVIE-13P-163-1180217-00

PATIENT
  Age: 28 Year
  Sex: Female
  Weight: 61.29 kg

DRUGS (13)
  1. HUMIRA [Suspect]
     Indication: CROHN^S DISEASE
     Route: 058
     Dates: start: 2012, end: 2012
  2. HUMIRA [Suspect]
     Dosage: TWO WEEKS AFTER INITIAL DOSE
     Route: 058
     Dates: start: 2012, end: 2012
  3. HUMIRA [Suspect]
     Dosage: 4 WEEKS AFTER INITIAL DOSE
     Route: 058
     Dates: start: 2012
  4. LORATADINE [Concomitant]
     Indication: HYPERSENSITIVITY
  5. PENTASA [Concomitant]
     Indication: CROHN^S DISEASE
  6. OMEPRAZOLE [Concomitant]
     Indication: DYSPEPSIA
  7. FOLIC ACID [Concomitant]
     Indication: PRODUCT USED FOR UNKNOWN INDICATION
  8. DICYCLOMINE [Concomitant]
     Indication: CROHN^S DISEASE
  9. MERCAPTOPURINE [Concomitant]
     Indication: CROHN^S DISEASE
  10. PROMETHAZINE [Concomitant]
     Indication: NAUSEA
  11. UCERIS [Concomitant]
     Indication: CROHN^S DISEASE
  12. CELEXA [Concomitant]
     Indication: DEPRESSION
  13. AMBIEN [Concomitant]
     Indication: INSOMNIA

REACTIONS (3)
  - Drug dose omission [Recovered/Resolved]
  - Headache [Not Recovered/Not Resolved]
  - Headache [Unknown]
